FAERS Safety Report 13701514 (Version 1)
Quarter: 2017Q2

REPORT INFORMATION
  Report Type: Spontaneous
  Country: US (occurrence: US)
  Receive Date: 20170628
  Receipt Date: 20170628
  Transmission Date: 20170830
  Serious: No
  Sender: FDA-Public Use
  Company Number: None

PATIENT
  Age: 29 Year
  Sex: Female
  Weight: 49.5 kg

DRUGS (6)
  1. VITAMIN D [Concomitant]
     Active Substance: CHOLECALCIFEROL
  2. COPAXONE [Suspect]
     Active Substance: GLATIRAMER ACETATE
     Indication: MULTIPLE SCLEROSIS
     Dosage: ?          QUANTITY:1 INJECTION(S);OTHER FREQUENCY:3X PER WEEK;?
     Route: 058
     Dates: start: 20170508, end: 20170628
  3. BIOTIN [Concomitant]
     Active Substance: BIOTIN
  4. VITAMIN B12 [Concomitant]
     Active Substance: CYANOCOBALAMIN
  5. MAGNESIUM [Concomitant]
     Active Substance: MAGNESIUM
  6. OMEGA 3 (FISH OIL) [Suspect]
     Active Substance: OMEGA-3 FATTY ACIDS

REACTIONS (4)
  - Injection site discolouration [None]
  - Injection site reaction [None]
  - Injection site atrophy [None]
  - Injection site inflammation [None]

NARRATIVE: CASE EVENT DATE: 20170526
